FAERS Safety Report 18988012 (Version 3)
Quarter: 2021Q3

REPORT INFORMATION
  Report Type: Spontaneous
  Country: US (occurrence: US)
  Receive Date: 20210309
  Receipt Date: 20210803
  Transmission Date: 20211014
  Serious: Yes (Hospitalization, Other)
  Sender: FDA-Public Use
  Company Number: US-GILEAD-2021-0519267

PATIENT
  Age: 40 Year
  Sex: Male
  Weight: 68.04 kg

DRUGS (38)
  1. EPIVIR [Concomitant]
     Active Substance: LAMIVUDINE
  2. NORVIR [Concomitant]
     Active Substance: RITONAVIR
  3. ACETAMINOPHEN. [Concomitant]
     Active Substance: ACETAMINOPHEN
  4. MAGNESIUM OXIDE. [Concomitant]
     Active Substance: MAGNESIUM OXIDE
  5. PERCOCET [Concomitant]
     Active Substance: ACETAMINOPHEN\OXYCODONE HYDROCHLORIDE
  6. POTASSIUM PHOSPHATE DIBASIC [Concomitant]
     Active Substance: POTASSIUM PHOSPHATE, DIBASIC
  7. REMERON [Concomitant]
     Active Substance: MIRTAZAPINE
  8. VITAMIN D2 [Concomitant]
     Active Substance: ERGOCALCIFEROL
  9. VITAMIN D NOS [Concomitant]
     Active Substance: VITAMIN D NOS
  10. VIREAD [Suspect]
     Active Substance: TENOFOVIR DISOPROXIL FUMARATE
     Dosage: UNK
     Route: 048
     Dates: start: 2001, end: 201101
  11. TRUVADA [Suspect]
     Active Substance: EMTRICITABINE\TENOFOVIR DISOPROXIL FUMARATE
     Indication: HIV INFECTION
     Route: 065
  12. PREZCOBIX [Concomitant]
     Active Substance: COBICISTAT\DARUNAVIR ETHANOLATE
  13. AMOXICILLIN. [Concomitant]
     Active Substance: AMOXICILLIN
  14. CEFTRIAXONE. [Concomitant]
     Active Substance: CEFTRIAXONE
  15. VALTREX [Concomitant]
     Active Substance: VALACYCLOVIR HYDROCHLORIDE
  16. VITAMIN B1 [Concomitant]
     Active Substance: THIAMINE HYDROCHLORIDE
  17. VIREAD [Suspect]
     Active Substance: TENOFOVIR DISOPROXIL FUMARATE
     Indication: HIV INFECTION
     Dosage: UNK
     Route: 048
     Dates: start: 2006
  18. COMBIVIR [Concomitant]
     Active Substance: LAMIVUDINE\ZIDOVUDINE
  19. TIVICAY [Concomitant]
     Active Substance: DOLUTEGRAVIR SODIUM
  20. RETROVIR [Concomitant]
     Active Substance: ZIDOVUDINE
  21. ZERIT [Concomitant]
     Active Substance: STAVUDINE
  22. ATROVENT [Concomitant]
     Active Substance: IPRATROPIUM BROMIDE
  23. SODIUM BICARBONATE. [Concomitant]
     Active Substance: SODIUM BICARBONATE
  24. TRAMADOL. [Concomitant]
     Active Substance: TRAMADOL
  25. KALETRA [Concomitant]
     Active Substance: LOPINAVIR\RITONAVIR
  26. CHLORDIAZEPOXIDE. [Concomitant]
     Active Substance: CHLORDIAZEPOXIDE
  27. GABAPENTIN. [Concomitant]
     Active Substance: GABAPENTIN
  28. HYDROMORPHONE [Concomitant]
     Active Substance: HYDROMORPHONE
  29. NEPHRO?VITE RX [Concomitant]
  30. PHENOBARBITAL. [Concomitant]
     Active Substance: PHENOBARBITAL
  31. SEVELAMER CARBONATE. [Concomitant]
     Active Substance: SEVELAMER CARBONATE
  32. ALBUTEROL [SALBUTAMOL] [Concomitant]
     Active Substance: ALBUTEROL
  33. PROTONIX [OMEPRAZOLE] [Concomitant]
     Active Substance: OMEPRAZOLE
  34. ISENTRESS [Concomitant]
     Active Substance: RALTEGRAVIR POTASSIUM
  35. VITAMIN D3 [Concomitant]
     Active Substance: CHOLECALCIFEROL
  36. ZIAGEN [Concomitant]
     Active Substance: ABACAVIR SULFATE
  37. ABACAVIR. [Concomitant]
     Active Substance: ABACAVIR
  38. LORAZEPAM. [Concomitant]
     Active Substance: LORAZEPAM

REACTIONS (9)
  - Emotional distress [Not Recovered/Not Resolved]
  - Anxiety [Not Recovered/Not Resolved]
  - Anhedonia [Not Recovered/Not Resolved]
  - Renal failure [Unknown]
  - Anaemia [Not Recovered/Not Resolved]
  - Hypertension [Not Recovered/Not Resolved]
  - Chronic kidney disease [Not Recovered/Not Resolved]
  - Acute kidney injury [Recovered/Resolved]
  - Pain [Not Recovered/Not Resolved]

NARRATIVE: CASE EVENT DATE: 2011
